FAERS Safety Report 5406940-9 (Version None)
Quarter: 2007Q3

REPORT INFORMATION
  Report Type: 
  Country: None (occurrence: None)
  Receive Date: 20070803
  Receipt Date: 20070803
  Transmission Date: 20080115
  Serious: No
  Sender: FDA-Public Use
  Company Number: None

PATIENT
  Age: 62 Year
  Sex: Male
  Weight: 77.1115 kg

DRUGS (2)
  1. OXYBUTYNIN 5 MG TABLET WATSON LABS [Suspect]
     Indication: NOCTURIA
     Dosage: ONE TABLET 1 TABLET- BEDTIME PO
     Route: 048
     Dates: start: 20061016, end: 20061116
  2. OXYBUTYNIN 5 MG TABLET WATSON LABS [Suspect]
     Indication: PROPHYLAXIS
     Dosage: ONE TABLET 1 TABLET- BEDTIME PO
     Route: 048
     Dates: start: 20061016, end: 20061116

REACTIONS (3)
  - DRY MOUTH [None]
  - DYSGEUSIA [None]
  - TOOTHACHE [None]
